FAERS Safety Report 23392373 (Version 1)
Quarter: 2024Q1

REPORT INFORMATION
  Report Type: Report from Study
  Country: US (occurrence: US)
  Receive Date: 20240111
  Receipt Date: 20240111
  Transmission Date: 20240409
  Serious: Yes (Death, Other)
  Sender: FDA-Public Use
  Company Number: US-INCYTE CORPORATION-2023IN012907

PATIENT

DRUGS (1)
  1. JAKAFI [Suspect]
     Active Substance: RUXOLITINIB
     Indication: Polycythaemia vera
     Dosage: 10 MILLIGRAM, BID
     Route: 065

REACTIONS (7)
  - Death [Fatal]
  - Pyrexia [Unknown]
  - Fatigue [Unknown]
  - Impaired healing [Unknown]
  - Night sweats [Unknown]
  - Arthropathy [Unknown]
  - Increased tendency to bruise [Unknown]
